FAERS Safety Report 4923762-3 (Version None)
Quarter: 2006Q1

REPORT INFORMATION
  Report Type: 
  Country: None (occurrence: None)
  Receive Date: 20060224
  Receipt Date: 20060224
  Transmission Date: 20060701
  Serious: Yes (Life-Threatening, Hospitalization)
  Sender: FDA-Public Use
  Company Number: None

PATIENT
  Age: 69 Year
  Sex: Female
  Weight: 63.5036 kg

DRUGS (2)
  1. LYRICA [Suspect]
     Indication: ANEURYSM
     Dosage: SEE IMAGE
     Route: 048
  2. LYRICA [Suspect]
     Indication: HEADACHE
     Dosage: SEE IMAGE
     Route: 048

REACTIONS (1)
  - GRAND MAL CONVULSION [None]
